FAERS Safety Report 9787140 (Version 1)
Quarter: 2013Q4

REPORT INFORMATION
  Report Type: Spontaneous
  Country: US (occurrence: US)
  Receive Date: 20131228
  Receipt Date: 20131228
  Transmission Date: 20140711
  Serious: No
  Sender: FDA-Public Use
  Company Number: US-009507513-1312USA009686

PATIENT
  Sex: Female

DRUGS (4)
  1. CORICIDIN HCP MAXIMUM STRENGTH FLU [Suspect]
     Indication: COUGH
     Dosage: 2 DF, QD
     Route: 048
     Dates: start: 20131211
  2. CORICIDIN HCP MAXIMUM STRENGTH FLU [Suspect]
     Indication: RESPIRATORY TRACT CONGESTION
  3. CORICIDIN HCP MAXIMUM STRENGTH FLU [Suspect]
     Indication: RHINORRHOEA
  4. PAXIL [Concomitant]
     Indication: DEPRESSION
     Dosage: UNK, UNKNOWN

REACTIONS (1)
  - Drug ineffective [Unknown]
